FAERS Safety Report 24089710 (Version 1)
Quarter: 2024Q3

REPORT INFORMATION
  Report Type: Spontaneous
  Country: US (occurrence: US)
  Receive Date: 20240715
  Receipt Date: 20240715
  Transmission Date: 20241016
  Serious: No
  Sender: BIOCON
  Company Number: US-BIOCON BIOLOGICS LIMITED-2023M1117100

PATIENT

DRUGS (1)
  1. FULPHILA [Suspect]
     Active Substance: PEGFILGRASTIM-JMDB
     Indication: Product used for unknown indication
     Dosage: 0.6 MILLILITER (ONCE EVERY 3 WEEKS)
     Route: 058
     Dates: start: 20230720

REACTIONS (2)
  - Device delivery system issue [Unknown]
  - Product quality issue [Unknown]

NARRATIVE: CASE EVENT DATE: 20231031
